FAERS Safety Report 6275967-X (Version None)
Quarter: 2009Q3

REPORT INFORMATION
  Report Type: 
  Country: None (occurrence: None)
  Receive Date: 20090720
  Receipt Date: 20090702
  Transmission Date: 20100115
  Serious: Yes (Death)
  Sender: FDA-Public Use
  Company Number: 2008AL012492

PATIENT
  Age: 75 Year
  Sex: Male
  Weight: 80.7403 kg

DRUGS (10)
  1. DIGOXIN [Suspect]
     Dosage: 0.25MG, DAILY, PO
     Route: 048
     Dates: start: 20040701
  2. VIAGRA [Concomitant]
  3. HYDROCODONE [Concomitant]
  4. TRIAMTERENE [Concomitant]
  5. SOTALOL [Concomitant]
  6. CLORAZEPATE DIPOTASSIUM [Concomitant]
  7. WARFARIN SODIUM [Concomitant]
  8. MELOXICAM [Concomitant]
  9. RYNEZE [Concomitant]
  10. ASTELIN [Concomitant]

REACTIONS (12)
  - ACUTE MYOCARDIAL INFARCTION [None]
  - BACK PAIN [None]
  - CARDIAC ARREST [None]
  - ECONOMIC PROBLEM [None]
  - FALL [None]
  - HEAD INJURY [None]
  - JOINT EFFUSION [None]
  - LACERATION [None]
  - MULTIPLE INJURIES [None]
  - NEPHROLITHIASIS [None]
  - VENTRICULAR FIBRILLATION [None]
  - VENTRICULAR TACHYCARDIA [None]
